FAERS Safety Report 6114183-9 (Version None)
Quarter: 2009Q1

REPORT INFORMATION
  Report Type: 
  Country: None (occurrence: None)
  Receive Date: 20090312
  Receipt Date: 20080514
  Transmission Date: 20090719
  Serious: No
  Sender: FDA-Public Use
  Company Number: US-ABBOTT-08P-163-0452632-00

PATIENT
  Sex: Male
  Weight: 99.88 kg

DRUGS (9)
  1. DEPAKOTE [Suspect]
     Indication: BIPOLAR I DISORDER
     Dosage: 1000MG DAILY, 500MG 2X DAILY
     Dates: start: 20020101, end: 20080511
  2. DEPAKOTE [Suspect]
     Dosage: 250 MG TABS AND 500 MG TABLET
     Dates: start: 20080512, end: 20080514
  3. DEPAKOTE [Suspect]
     Dosage: 1000MG DAILY, 500MG 2X DAILY
     Dates: start: 20080515
  4. WELLBUTIN [Concomitant]
     Indication: BIPOLAR I DISORDER
     Route: 048
     Dates: start: 20080201
  5. ADVIL [Concomitant]
     Indication: PAIN
     Dosage: AS NEEDED - USUALLY TAKE 3
     Route: 048
  6. METAMUCIL [Concomitant]
     Indication: SUPPLEMENTATION THERAPY
     Dosage: DAILY
     Route: 048
     Dates: start: 19980101
  7. METAMUCIL [Concomitant]
     Indication: CONSTIPATION
  8. CENTRUM [Concomitant]
     Indication: VITAMIN SUPPLEMENTATION
     Route: 048
     Dates: start: 19980101
  9. LORATADINE [Concomitant]
     Indication: SEASONAL ALLERGY
     Dosage: 1 PILL AS NEEDED
     Route: 048
     Dates: start: 20080519

REACTIONS (9)
  - ANGER [None]
  - APATHY [None]
  - ERYTHEMA [None]
  - FEELING HOT [None]
  - HYPERHIDROSIS [None]
  - RASH [None]
  - RASH PRURITIC [None]
  - STRESS [None]
  - WEIGHT INCREASED [None]
